FAERS Safety Report 5828450-7 (Version None)
Quarter: 2008Q3

REPORT INFORMATION
  Report Type: 
  Country: None (occurrence: None)
  Receive Date: 20080731
  Receipt Date: 20080722
  Transmission Date: 20090109
  Serious: Yes (Hospitalization)
  Sender: FDA-Public Use
  Company Number: GB-WATSON-2008-04444

PATIENT
  Sex: Male

DRUGS (4)
  1. FENTANYL CITRATE (WATSON LABORATORIES) [Suspect]
     Indication: GENERAL ANAESTHESIA
     Dosage: 50 UG, UNK
     Route: 065
  2. LEVOBUPIVACAINE [Suspect]
     Indication: NERVE BLOCK
     Dosage: 30 ML, SINGLE
     Route: 065
  3. PROPOFOL [Suspect]
     Indication: GENERAL ANAESTHESIA
     Dosage: 200 MG, SINGLE
     Route: 065
  4. SEVOFLURANE [Suspect]
     Indication: GENERAL ANAESTHESIA
     Route: 065

REACTIONS (1)
  - MIGRAINE WITH AURA [None]
